FAERS Safety Report 14388093 (Version 3)
Quarter: 2021Q2

REPORT INFORMATION
  Report Type: Spontaneous
  Country: US (occurrence: US)
  Receive Date: 20180115
  Receipt Date: 20210527
  Transmission Date: 20210716
  Serious: Yes (Other)
  Sender: FDA-Public Use
  Company Number: US-SA-2017SA209396

PATIENT
  Age: 57 Year
  Sex: Female
  Weight: 72 kg

DRUGS (8)
  1. TRAMADOL. [Concomitant]
     Active Substance: TRAMADOL
     Indication: ALOPECIA
  2. DOCETAXEL. [Suspect]
     Active Substance: DOCETAXEL
     Dosage: 75 MG/M2,Q3W
     Route: 065
     Dates: start: 20130705, end: 20130705
  3. PARAPLATIN [Concomitant]
     Active Substance: CARBOPLATIN
     Indication: BREAST CANCER FEMALE
     Dosage: 20 MG/M2, Q3W
     Route: 065
     Dates: start: 20130323, end: 20130323
  4. ZOLOFT [Concomitant]
     Active Substance: SERTRALINE HYDROCHLORIDE
     Indication: ALOPECIA
  5. LIPITOR [Concomitant]
     Active Substance: ATORVASTATIN CALCIUM
     Indication: ALOPECIA
  6. DOCETAXEL. [Suspect]
     Active Substance: DOCETAXEL
     Indication: BREAST CANCER FEMALE
     Dosage: 75 MG/M2,Q3W
     Route: 065
     Dates: start: 20130327, end: 20130327
  7. PARAPLATIN [Concomitant]
     Active Substance: CARBOPLATIN
     Dosage: 20 MG/M2, Q3W
     Route: 065
     Dates: start: 20130705, end: 20130705
  8. LISINOPRIL. [Concomitant]
     Active Substance: LISINOPRIL
     Indication: ALOPECIA

REACTIONS (2)
  - Psychological trauma [Unknown]
  - Alopecia [Recovering/Resolving]

NARRATIVE: CASE EVENT DATE: 20131225
